FAERS Safety Report 20457632 (Version 11)
Quarter: 2023Q2

REPORT INFORMATION
  Report Type: Spontaneous
  Country: ES (occurrence: ES)
  Receive Date: 20220210
  Receipt Date: 20230403
  Transmission Date: 20230721
  Serious: Yes (Hospitalization, Other)
  Sender: FDA-Public Use
  Company Number: ES-NOVARTISPH-NVSC2022ES028500

PATIENT
  Age: 82 Year
  Sex: Female

DRUGS (9)
  1. OLMESARTAN MEDOXOMIL [Suspect]
     Active Substance: OLMESARTAN MEDOXOMIL
     Indication: Hypertension
     Dosage: 40 MG, QD
     Route: 048
  2. LEVOTHYROXINE [Concomitant]
     Active Substance: LEVOTHYROXINE
     Indication: Hypothyroidism
     Dosage: 100 UG, QD
     Route: 065
  3. TORSEMIDE [Concomitant]
     Active Substance: TORSEMIDE
     Indication: Pulmonary hypertension
     Dosage: 10 MG, QD
     Route: 065
  4. ACETAMINOPHEN [Concomitant]
     Active Substance: ACETAMINOPHEN
     Indication: Osteoarthritis
     Dosage: 1G EVERY 8-12H
     Route: 065
  5. ACETAMINOPHEN [Concomitant]
     Active Substance: ACETAMINOPHEN
     Indication: Polyarthritis
  6. LERCANIDIPINO [Concomitant]
     Indication: Hypertension
     Dosage: 10 MG, QD
     Route: 065
  7. LERCANIDIPINO [Concomitant]
     Dosage: 20 MG, QD
     Route: 065
  8. PROPRANOLOL [Concomitant]
     Active Substance: PROPRANOLOL HYDROCHLORIDE
     Indication: Essential tremor
     Dosage: 10 MG/8 H
     Route: 065
  9. WARFARIN [Concomitant]
     Active Substance: WARFARIN
     Indication: Atrial fibrillation
     Dosage: UNK UNK, UNKNOWN
     Route: 065

REACTIONS (12)
  - Hypokalaemia [Recovered/Resolved]
  - Gastrointestinal disorder [Recovered/Resolved]
  - Sprue-like enteropathy [Recovered/Resolved]
  - Renal failure [Recovered/Resolved]
  - Diarrhoea [Recovered/Resolved]
  - Hyperplasia [Unknown]
  - Duodenitis [Unknown]
  - Electrolyte depletion [Unknown]
  - Malabsorption [Unknown]
  - Coeliac disease [Recovered/Resolved]
  - Lymphocytosis [Unknown]
  - Weight decreased [Recovered/Resolved]
